FAERS Safety Report 24263080 (Version 1)
Quarter: 2024Q3

REPORT INFORMATION
  Report Type: Spontaneous
  Country: US (occurrence: US)
  Receive Date: 20240829
  Receipt Date: 20240829
  Transmission Date: 20241017
  Serious: Yes (Other)
  Sender: INCYTE
  Company Number: US-INCYTE CORPORATION-2024IN008890

PATIENT

DRUGS (1)
  1. JAKAFI [Suspect]
     Active Substance: RUXOLITINIB
     Indication: Chronic graft versus host disease
     Dosage: 10 MILLIGRAM, QD
     Route: 048
     Dates: start: 20211110

REACTIONS (6)
  - Non-small cell lung cancer [Unknown]
  - Adenocarcinoma [Unknown]
  - Lung disorder [Unknown]
  - Wheezing [Unknown]
  - Cough [Unknown]
  - Musculoskeletal chest pain [Unknown]
